FAERS Safety Report 9513944 (Version 1)
Quarter: 2013Q3

REPORT INFORMATION
  Report Type: Spontaneous
  Country: US (occurrence: US)
  Receive Date: 20130910
  Receipt Date: 20130910
  Transmission Date: 20140515
  Serious: Yes (Hospitalization)
  Sender: FDA-Public Use
  Company Number: US-B.I. PHARMACEUTICALS,INC./RIDGEFIELD-2013-BI-27698BP

PATIENT
  Age: 44 Year
  Sex: Female
  Weight: 63 kg

DRUGS (12)
  1. COMBIVENT [Suspect]
     Indication: ASTHMA
     Dosage: STRENGTH: 18 MCG / 103 MCG; DAILY DOSE: 144 MCG/824 MCG
     Route: 055
     Dates: start: 199610, end: 201306
  2. SYMBICORT [Concomitant]
     Indication: CHRONIC OBSTRUCTIVE PULMONARY DISEASE
     Dosage: 2 PUF
     Route: 055
  3. ESTROPIPATE [Concomitant]
     Indication: HORMONE REPLACEMENT THERAPY
     Dosage: 0.75 MG
     Route: 048
  4. PREDNISONE [Concomitant]
     Route: 048
  5. VITAMIN D [Concomitant]
  6. COMBIVENT RESPIMAT [Concomitant]
     Indication: CHRONIC OBSTRUCTIVE PULMONARY DISEASE
     Dosage: STRENGTH: 20 MCG/100 MCG; DAILY DOSE: 80 MCG/400 MCG
     Route: 055
     Dates: start: 201306
  7. LASIX [Concomitant]
     Indication: FLUID RETENTION
     Route: 048
  8. UNIPHYL ER [Concomitant]
     Dosage: 1 ANZ
     Route: 048
  9. DYAZIDE [Concomitant]
     Dosage: STRENGTH: 50/75 MG;
     Route: 048
  10. FIORINOL [Concomitant]
     Indication: MIGRAINE
     Route: 048
  11. DUO NEBS [Concomitant]
     Indication: CHRONIC OBSTRUCTIVE PULMONARY DISEASE
     Route: 055
  12. LORTAB [Concomitant]
     Dosage: STRENGTH: 7.5/500 MG; DAILY DOSE: 15/1000 MG
     Route: 048

REACTIONS (3)
  - Pulmonary granuloma [Not Recovered/Not Resolved]
  - Rheumatoid arthritis [Not Recovered/Not Resolved]
  - Off label use [Recovered/Resolved]
